FAERS Safety Report 6759866 (Version 2)
Quarter: 2022Q4

REPORT INFORMATION
  Report Type: Spontaneous
  Country: US (occurrence: US)
  Receive Date: 20080916
  Receipt Date: 20221006
  Transmission Date: 20230113
  Serious: Yes (Other)
  Sender: FDA-Public Use
  Company Number: US-RANBAXY-2008RR-17909

PATIENT
  Age: 39 Year
  Sex: Male

DRUGS (13)
  1. ZIDOVUDINE [Suspect]
     Active Substance: ZIDOVUDINE
     Indication: HIV infection
     Dosage: UNK
     Route: 065
  2. DIDANOSINE [Suspect]
     Active Substance: DIDANOSINE
     Indication: HIV infection
     Dosage: UNK
     Route: 065
     Dates: end: 2003
  3. INDINAVIR [Suspect]
     Active Substance: INDINAVIR
     Indication: Product used for unknown indication
     Dosage: UNK
     Route: 065
     Dates: end: 2003
  4. NEVIRAPINE [Suspect]
     Active Substance: NEVIRAPINE
     Indication: HIV infection
     Dosage: UNK
     Route: 065
  5. STAVUDINE [Suspect]
     Active Substance: STAVUDINE
     Indication: HIV infection
     Dosage: UNK
     Route: 065
     Dates: end: 2003
  6. EFAVIRENZ [Suspect]
     Active Substance: EFAVIRENZ
     Indication: HIV infection
     Dosage: UNK
     Route: 065
  7. ATAZANAVIR [Concomitant]
     Active Substance: ATAZANAVIR
     Indication: HIV infection
     Dosage: UNK
     Route: 065
  8. LAMIVUDINE [Concomitant]
     Active Substance: LAMIVUDINE
     Indication: HIV infection
     Dosage: 300 MG, QD
     Route: 065
  9. RITONAVIR [Concomitant]
     Active Substance: RITONAVIR
     Indication: HIV infection
     Dosage: UNK
     Route: 065
  10. TENOFOVIR [Concomitant]
     Active Substance: TENOFOVIR
     Indication: HIV infection
     Dosage: 300 MG, QD
     Route: 065
  11. LOPINAVIR\RITONAVIR [Concomitant]
     Active Substance: LOPINAVIR\RITONAVIR
     Indication: HIV infection
     Dosage: 750 MG, BID
     Route: 065
     Dates: start: 200402
  12. FOSAMPRENAVIR [Concomitant]
     Active Substance: FOSAMPRENAVIR
     Indication: HIV infection
     Dosage: 1400 MG, BID
     Route: 065
     Dates: start: 200402
  13. FEXOFENADINE [Concomitant]
     Active Substance: FEXOFENADINE HYDROCHLORIDE
     Indication: Product used for unknown indication
     Dosage: 60 MG, PRN
     Route: 065

REACTIONS (4)
  - Lipodystrophy acquired [Not Recovered/Not Resolved]
  - Anaemia [Recovering/Resolving]
  - Neuropathy peripheral [Unknown]
  - Rash [Unknown]
